FAERS Safety Report 4920949-0 (Version None)
Quarter: 2006Q1

REPORT INFORMATION
  Report Type: 
  Country: None (occurrence: None)
  Receive Date: 20060223
  Receipt Date: 20051019
  Transmission Date: 20060701
  Serious: Yes (Hospitalization, Disabling)
  Sender: FDA-Public Use
  Company Number: US-MERCK-0510USA08265

PATIENT
  Sex: Female
  Weight: 66 kg

DRUGS (9)
  1. FLEXERIL [Concomitant]
     Indication: MYALGIA
     Route: 048
     Dates: start: 20030519, end: 20030619
  2. SOMA [Concomitant]
     Indication: MYALGIA
     Route: 065
     Dates: start: 20031009, end: 20040114
  3. ATENOLOL [Concomitant]
     Route: 065
  4. AVELOX [Concomitant]
     Route: 065
  5. VIOXX [Suspect]
     Indication: BACK PAIN
     Route: 048
     Dates: start: 20031001, end: 20040201
  6. VIOXX [Suspect]
     Indication: JOINT INJURY
     Route: 048
     Dates: start: 20031001, end: 20040201
  7. HYDROCODONE BITARTRATE [Concomitant]
     Route: 065
  8. ASPIRIN [Concomitant]
     Route: 065
  9. LIPITOR [Concomitant]
     Route: 065

REACTIONS (5)
  - BLOOD CHOLESTEROL INCREASED [None]
  - HYPERSENSITIVITY [None]
  - MENTAL DISORDER [None]
  - MUSCULOSKELETAL DISORDER [None]
  - MYOCARDIAL INFARCTION [None]
